FAERS Safety Report 5481771-2 (Version None)
Quarter: 2007Q4

REPORT INFORMATION
  Report Type: 
  Country: None (occurrence: None)
  Receive Date: 20071004
  Receipt Date: 20070925
  Transmission Date: 20080405
  Serious: Yes (Life-Threatening)
  Sender: FDA-Public Use
  Company Number: 1-15363703/MED-07206

PATIENT
  Sex: Female
  Weight: 16.7831 kg

DRUGS (4)
  1. CLONIDINE HCL [Suspect]
     Indication: AGITATION
     Dosage: 0.3 MG OVER 9 HR PERIOD, ORAL
     Route: 048
  2. ZANTAC [Concomitant]
  3. LACTULOSE [Concomitant]
  4. LIORSEAL (BACLOFEN) [Concomitant]

REACTIONS (9)
  - CARDIAC ARREST [None]
  - CHEST X-RAY ABNORMAL [None]
  - DIASTOLIC DYSFUNCTION [None]
  - ECHOCARDIOGRAM ABNORMAL [None]
  - HEART RATE INCREASED [None]
  - PULSE ABSENT [None]
  - SEDATION [None]
  - SINUS BRADYCARDIA [None]
  - VENTRICULAR DYSFUNCTION [None]
